FAERS Safety Report 7486230-3 (Version None)
Quarter: 2011Q2

REPORT INFORMATION
  Report Type: 
  Country: None (occurrence: None)
  Receive Date: 20110517
  Receipt Date: 20110214
  Transmission Date: 20111010
  Serious: No
  Sender: FDA-Public Use
  Company Number: A0913414A

PATIENT
  Age: 69 Year
  Sex: Male

DRUGS (6)
  1. VOTRIENT [Suspect]
     Dosage: 800MG PER DAY
     Route: 048
     Dates: start: 20110129
  2. ASPIRIN [Suspect]
     Route: 048
  3. CARDURA [Concomitant]
  4. CARTIA XT [Concomitant]
  5. RAMIPRIL [Concomitant]
  6. BENICAR [Concomitant]

REACTIONS (2)
  - HEADACHE [None]
  - EPISTAXIS [None]
